FAERS Safety Report 25675492 (Version 1)
Quarter: 2025Q3

REPORT INFORMATION
  Report Type: Spontaneous
  Country: US (occurrence: US)
  Receive Date: 20250813
  Receipt Date: 20250813
  Transmission Date: 20251021
  Serious: Yes (Other)
  Sender: APOTEX
  Company Number: US-APOTEX-2025AP011589

PATIENT
  Sex: Male

DRUGS (2)
  1. GEMCITABINE [Suspect]
     Active Substance: GEMCITABINE
     Indication: Hormone-refractory prostate cancer
     Dosage: 1500 MILLIGRAM/SQ. METER, B.I.WK., 28-DAY CYCLE
     Route: 065
  2. DOCETAXEL [Suspect]
     Active Substance: DOCETAXEL
     Indication: Hormone-refractory prostate cancer
     Dosage: 50 MILLIGRAM/SQ. METER, B.I.WK., 28-DAY CYCLE
     Route: 065

REACTIONS (1)
  - Febrile neutropenia [Unknown]
